FAERS Safety Report 8116568-8 (Version None)
Quarter: 2012Q1

REPORT INFORMATION
  Report Type: 
  Country: None (occurrence: None)
  Receive Date: 20120206
  Receipt Date: 20120127
  Transmission Date: 20120608
  Serious: Yes (Hospitalization, Other)
  Sender: FDA-Public Use
  Company Number: US-BAYER-201041697NA

PATIENT
  Age: 33 Year
  Sex: Female
  Weight: 52.154 kg

DRUGS (8)
  1. YAZ [Suspect]
     Indication: PRODUCT USED FOR UNKNOWN INDICATION
     Dosage: UNK
     Dates: start: 20080401, end: 20080601
  2. AMOXICILLIN [Concomitant]
     Dosage: UNK
     Dates: start: 20080304
  3. PROZAC [Concomitant]
     Dosage: UNK
     Dates: start: 20070101, end: 20080101
  4. LOVENOX [Concomitant]
     Indication: PULMONARY EMBOLISM
  5. BYSTOLIC [Concomitant]
     Dosage: UNK
     Dates: start: 20080513
  6. ALPRAZOLAM [Concomitant]
     Dosage: UNK
     Dates: start: 20080501, end: 20080801
  7. YAZ [Suspect]
     Indication: PREMENSTRUAL SYNDROME
  8. COUMADIN [Concomitant]
     Indication: PULMONARY EMBOLISM

REACTIONS (5)
  - PULMONARY EMBOLISM [None]
  - DEEP VEIN THROMBOSIS [None]
  - GALLBLADDER NON-FUNCTIONING [None]
  - ANXIETY [None]
  - CHEST PAIN [None]
